FAERS Safety Report 9159905 (Version 1)
Quarter: 2013Q1

REPORT INFORMATION
  Report Type: Spontaneous
  Country: KR (occurrence: None)
  Receive Date: 20130219
  Receipt Date: 20130219
  Transmission Date: 20140127
  Serious: Yes (Hospitalization, Other)
  Sender: FDA-Public Use
  Company Number: 2013P1002152

PATIENT
  Age: 65 Year
  Sex: Female

DRUGS (1)
  1. CEFTRIAXONE [Suspect]
     Indication: URINARY TRACT INFECTION
     Route: 042
     Dates: start: 20101203, end: 20101210

REACTIONS (10)
  - Stupor [None]
  - Azotaemia [None]
  - Myoclonus [None]
  - Haemodialysis [None]
  - Status epilepticus [None]
  - Vena cava thrombosis [None]
  - Renal vein thrombosis [None]
  - Ovarian vein thrombosis [None]
  - Pelvic venous thrombosis [None]
  - Neurotoxicity [None]
